FAERS Safety Report 12466914 (Version 2)
Quarter: 2016Q2

REPORT INFORMATION
  Report Type: Report from Study
  Country: CR (occurrence: CR)
  Receive Date: 20160615
  Receipt Date: 20160627
  Transmission Date: 20160815
  Serious: Yes (Other)
  Sender: FDA-Public Use
  Company Number: PHHY2016CR061880

PATIENT
  Age: 27 Year
  Sex: Female
  Weight: 58 kg

DRUGS (1)
  1. GILENYA [Suspect]
     Active Substance: FINGOLIMOD HYDROCHLORIDE
     Indication: MULTIPLE SCLEROSIS
     Dosage: 0.5 MG, QD
     Route: 048

REACTIONS (6)
  - White blood cell count decreased [Unknown]
  - Memory impairment [Unknown]
  - Urinary incontinence [Unknown]
  - Speech disorder [Unknown]
  - Rash [Unknown]
  - Tongue disorder [Unknown]

NARRATIVE: CASE EVENT DATE: 20160608
